FAERS Safety Report 4473588-2 (Version None)
Quarter: 2004Q4

REPORT INFORMATION
  Report Type: 
  Country: None (occurrence: None)
  Receive Date: 20041013
  Receipt Date: 20041011
  Transmission Date: 20050328
  Serious: Yes (Other)
  Sender: FDA-Public Use
  Company Number: AU-MERCK-0410AUS00121

PATIENT
  Age: 83 Year
  Sex: Male

DRUGS (6)
  1. ASCORBIC ACID [Concomitant]
     Route: 065
  2. PLAVIX [Concomitant]
     Route: 065
  3. VASTIN [Concomitant]
     Route: 065
  4. FOLIC ACID [Concomitant]
     Route: 065
  5. VIOXX [Suspect]
     Indication: OSTEOARTHRITIS
     Route: 065
     Dates: start: 20030101, end: 20041001
  6. VITAMIN E [Concomitant]
     Route: 065

REACTIONS (1)
  - CEREBROVASCULAR ACCIDENT [None]
